FAERS Safety Report 13234683 (Version 1)
Quarter: 2017Q1

REPORT INFORMATION
  Report Type: Spontaneous
  Country: US (occurrence: US)
  Receive Date: 20170214
  Receipt Date: 20170214
  Transmission Date: 20170428
  Serious: Yes (Hospitalization)
  Sender: FDA-Public Use
  Company Number: None

PATIENT
  Age: 61 Year
  Sex: Male
  Weight: 116 kg

DRUGS (19)
  1. HYDROCHLOROTHIAZIDE. [Concomitant]
     Active Substance: HYDROCHLOROTHIAZIDE
  2. RITUXIMAB [Suspect]
     Active Substance: RITUXIMAB
  3. PROCHLORPERAZINE. [Concomitant]
     Active Substance: PROCHLORPERAZINE
  4. LOPERADMIDE [Concomitant]
  5. OMEPRAZOLE. [Concomitant]
     Active Substance: OMEPRAZOLE
  6. CLOPIDROGEAL BISUFATE [Concomitant]
  7. FLUDARABINE [Suspect]
     Active Substance: FLUDARABINE PHOSPHATE
     Indication: CHRONIC LYMPHOCYTIC LEUKAEMIA
     Route: 042
     Dates: start: 20131021, end: 20131023
  8. CYCLOPHOSPHAMIDE. [Suspect]
     Active Substance: CYCLOPHOSPHAMIDE
  9. VALCYCLOVIE [Concomitant]
  10. ASPIRIN. [Concomitant]
     Active Substance: ASPIRIN
  11. ENALAPRIL MELEATE [Concomitant]
  12. TRIMETHOPRIM-SULFAMETHOXATOLEIM [Concomitant]
  13. METOPROLOL TARTRATE. [Concomitant]
     Active Substance: METOPROLOL TARTRATE
  14. VORINOSTAT [Suspect]
     Active Substance: VORINOSTAT
     Indication: CHRONIC LYMPHOCYTIC LEUKAEMIA
     Dosage: 400 MG QD D1-5+8-12 PO
     Route: 048
  15. CLONIDINE. [Concomitant]
     Active Substance: CLONIDINE
  16. LEVOTHYROXINE. [Concomitant]
     Active Substance: LEVOTHYROXINE
  17. LORAZEPAM. [Concomitant]
     Active Substance: LORAZEPAM
  18. ONDANSETRON [Concomitant]
     Active Substance: ONDANSETRON
  19. ALLOPURINOL. [Concomitant]
     Active Substance: ALLOPURINOL

REACTIONS (1)
  - Pulmonary embolism [None]

NARRATIVE: CASE EVENT DATE: 20131031
